FAERS Safety Report 6820833-1 (Version None)
Quarter: 2010Q3

REPORT INFORMATION
  Report Type: 
  Country: None (occurrence: None)
  Receive Date: 20100707
  Receipt Date: 20070711
  Transmission Date: 20110219
  Serious: Yes (Other)
  Sender: FDA-Public Use
  Company Number: US-PFIZER INC-2007048856

PATIENT
  Age: 90 Year
  Sex: Female
  Weight: 63.5 kg

DRUGS (8)
  1. ZOLOFT [Suspect]
     Indication: ADJUSTMENT DISORDER
     Route: 048
  2. SYNTHROID [Concomitant]
  3. PRAVACHOL [Concomitant]
  4. FOSAMAX [Concomitant]
  5. NORVASC [Concomitant]
  6. CELEBREX [Concomitant]
  7. VITAMINS [Concomitant]
  8. ALL OTHER THERAPEUTIC PRODUCTS [Concomitant]

REACTIONS (2)
  - HALLUCINATION, AUDITORY [None]
  - HALLUCINATION, VISUAL [None]
